FAERS Safety Report 12595878 (Version 1)
Quarter: 2016Q3

REPORT INFORMATION
  Report Type: Report from Study
  Country: US (occurrence: US)
  Receive Date: 20160726
  Receipt Date: 20160726
  Transmission Date: 20161109
  Serious: Yes (Other)
  Sender: FDA-Public Use
  Company Number: US-AMGEN-USASL2016050215

PATIENT
  Age: 53 Year
  Sex: Male

DRUGS (3)
  1. KYPROLIS [Suspect]
     Active Substance: CARFILZOMIB
     Indication: PRODUCT USED FOR UNKNOWN INDICATION
     Dosage: UNK
     Route: 065
  2. DEXAMETHASONE. [Concomitant]
     Active Substance: DEXAMETHASONE
     Dosage: UNK
  3. POMALIDOMIDE [Concomitant]
     Active Substance: POMALIDOMIDE
     Dosage: UNK

REACTIONS (7)
  - Overdose [Unknown]
  - Influenza [Recovered/Resolved]
  - White blood cell count increased [Unknown]
  - Leukopenia [Unknown]
  - Musculoskeletal discomfort [Not Recovered/Not Resolved]
  - Hypertension [Unknown]
  - Anaemia of malignant disease [Unknown]

NARRATIVE: CASE EVENT DATE: 20160127
